FAERS Safety Report 24408954 (Version 2)
Quarter: 2024Q4

REPORT INFORMATION
  Report Type: Report from Study
  Country: US (occurrence: US)
  Receive Date: 20241007
  Receipt Date: 20241011
  Transmission Date: 20250115
  Serious: Yes (Other)
  Sender: ABBVIE
  Company Number: US-ABBVIE-5949739

PATIENT
  Sex: Male
  Weight: 95.254 kg

DRUGS (6)
  1. RINVOQ [Suspect]
     Active Substance: UPADACITINIB
     Indication: Rheumatoid arthritis
     Route: 048
     Dates: start: 20230518
  2. IBUPROFEN [Concomitant]
     Active Substance: IBUPROFEN
     Indication: Pain
  3. FOLIC ACID [Concomitant]
     Active Substance: FOLIC ACID
     Indication: Vitamin supplementation
  4. VITAMINS [Concomitant]
     Active Substance: VITAMINS
     Indication: Vitamin supplementation
  5. PROTONIX [Concomitant]
     Active Substance: PANTOPRAZOLE SODIUM
     Indication: Gastrooesophageal reflux disease
  6. METHOTREXATE [Concomitant]
     Active Substance: METHOTREXATE
     Indication: Rheumatoid arthritis

REACTIONS (8)
  - Retinal operation [Unknown]
  - Headache [Recovering/Resolving]
  - Glucose tolerance impaired [Not Recovered/Not Resolved]
  - Abdominal pain upper [Recovering/Resolving]
  - Intraocular lens implant [Unknown]
  - Inadequate diet [Unknown]
  - Feeding disorder [Unknown]
  - Stress [Unknown]

NARRATIVE: CASE EVENT DATE: 20240101
